FAERS Safety Report 12254731 (Version 1)
Quarter: 2016Q2

REPORT INFORMATION
  Report Type: Report from Study
  Country: JP (occurrence: JP)
  Receive Date: 20160411
  Receipt Date: 20160411
  Transmission Date: 20160815
  Serious: Yes (Life-Threatening)
  Sender: FDA-Public Use
  Company Number: JP-PFIZER INC-2014004819

PATIENT
  Age: 77 Year
  Sex: Female
  Weight: 51 kg

DRUGS (8)
  1. XALKORI [Suspect]
     Active Substance: CRIZOTINIB
     Indication: NON-SMALL CELL LUNG CANCER
     Dosage: 250 MG, 2X/DAY
     Route: 048
     Dates: start: 20130625, end: 20130722
  2. ESANBUTOL [Suspect]
     Active Substance: ETHAMBUTOL HYDROCHLORIDE
     Dosage: 840 MG, 1X/DAY
     Route: 048
     Dates: end: 20130716
  3. MEVALOTIN [Concomitant]
     Active Substance: PRAVASTATIN SODIUM
     Dosage: 10 MG, 1X/DAY
     Route: 048
     Dates: end: 20130727
  4. MYCOBUTIN [Suspect]
     Active Substance: RIFABUTIN
     Dosage: 300 MG, 1X/DAY
     Route: 048
     Dates: end: 20130716
  5. PYRAMIDE [Suspect]
     Active Substance: PYRAZINAMIDE
     Dosage: 1.4 G, 1X/DAY
     Route: 048
     Dates: end: 20130716
  6. BLOPRESS [Concomitant]
     Active Substance: CANDESARTAN CILEXETIL
     Dosage: 8 MG, 1X/DAY
     Route: 048
     Dates: end: 20130730
  7. ISCOTIN [Suspect]
     Active Substance: ISONIAZID
     Dosage: 0.28 G, 1X/DAY
     Route: 048
     Dates: end: 20130716
  8. ADALAT CC [Concomitant]
     Active Substance: NIFEDIPINE
     Dosage: 40 MG, 1X/DAY
     Route: 048
     Dates: end: 20130728

REACTIONS (1)
  - Drug-induced liver injury [Recovered/Resolved]

NARRATIVE: CASE EVENT DATE: 20130716
